FAERS Safety Report 24869346 (Version 1)
Quarter: 2025Q1

REPORT INFORMATION
  Report Type: Spontaneous
  Country: US (occurrence: None)
  Receive Date: 20250119
  Receipt Date: 20250119
  Transmission Date: 20250409
  Serious: Yes (Hospitalization)
  Sender: FDA-CTU
  Company Number: None

PATIENT
  Age: 57 Year
  Sex: Female
  Weight: 81 kg

DRUGS (1)
  1. SYNTHROID [Suspect]
     Active Substance: LEVOTHYROXINE SODIUM
     Route: 048
     Dates: start: 20211011

REACTIONS (4)
  - Cardiac flutter [None]
  - Extrasystoles [None]
  - Atrial fibrillation [None]
  - Heart rate irregular [None]

NARRATIVE: CASE EVENT DATE: 20211011
